FAERS Safety Report 7865031-8 (Version None)
Quarter: 2011Q4

REPORT INFORMATION
  Report Type: 
  Country: None (occurrence: None)
  Receive Date: 20111028
  Receipt Date: 20101004
  Transmission Date: 20120403
  Serious: No
  Sender: FDA-Public Use
  Company Number: US-GLAXOSMITHKLINE-A0884778A

PATIENT
  Age: 82 Year
  Sex: Female

DRUGS (5)
  1. ASPIRIN [Concomitant]
  2. IMDUR [Concomitant]
  3. VITAMIN TAB [Concomitant]
  4. METOPROLOL TARTRATE [Concomitant]
  5. ADVAIR DISKUS 100/50 [Suspect]
     Indication: ASTHMA
     Dosage: 1PUFF AS REQUIRED
     Route: 055
     Dates: start: 20060101

REACTIONS (2)
  - DYSPNOEA [None]
  - PRODUCT QUALITY ISSUE [None]
